FAERS Safety Report 9888976 (Version 2)
Quarter: 2015Q1

REPORT INFORMATION
  Report Type: Spontaneous
  Country: US (occurrence: None)
  Receive Date: 20140207
  Receipt Date: 20150112
  Transmission Date: 20150721
  Serious: Yes (Other)
  Sender: FDA-Public Use
  Company Number: US-MDCO-14-00031

PATIENT
  Age: 14 Month
  Sex: Male
  Weight: 9 kg

DRUGS (7)
  1. METHYLPREDNISOLONE. [Concomitant]
     Active Substance: METHYLPREDNISOLONE
  2. DIPYRIDAMOLE. [Concomitant]
     Active Substance: DIPYRIDAMOLE
  3. CLOPIDOGREL [Concomitant]
     Active Substance: CLOPIDOGREL BISULFATE
  4. ANGIOMAX [Suspect]
     Active Substance: BIVALIRUDIN
     Indication: VENTRICULAR ASSIST DEVICE INSERTION
     Dosage: UNKNOWN
  5. ASPRIN [Concomitant]
     Active Substance: ASPIRIN
  6. ENOXAPARIN [Concomitant]
     Active Substance: ENOXAPARIN
  7. HEPARIN [Concomitant]
     Active Substance: HEPARIN SODIUM

REACTIONS (3)
  - Thrombosis [None]
  - Ventricular assist device insertion [None]
  - Off label use [None]
